FAERS Safety Report 4369503-2 (Version None)
Quarter: 2004Q2

REPORT INFORMATION
  Report Type: 
  Country: None (occurrence: None)
  Receive Date: 20040603
  Receipt Date: 20040423
  Transmission Date: 20050107
  Serious: Yes (Hospitalization)
  Sender: FDA-Public Use
  Company Number: 200411473JP

PATIENT
  Age: 48 Year
  Sex: Male

DRUGS (6)
  1. KETEK [Suspect]
     Indication: TONSILLITIS
     Route: 048
     Dates: start: 20040406, end: 20040407
  2. SULPYRINE [Suspect]
     Indication: INFLAMMATION
     Route: 058
     Dates: start: 20040406, end: 20040407
  3. SULPYRINE [Suspect]
     Indication: PYREXIA
     Route: 058
     Dates: start: 20040406, end: 20040407
  4. FOSMICIN S [Concomitant]
     Indication: TONSILLITIS
     Route: 042
     Dates: start: 20040404, end: 20040407
  5. MEIACT [Concomitant]
     Indication: TONSILLITIS
     Route: 048
     Dates: start: 20040404, end: 20040405
  6. FLUMARIN [Concomitant]
     Indication: INFLAMMATION
     Route: 042
     Dates: start: 20040412, end: 20040415

REACTIONS (9)
  - ALANINE AMINOTRANSFERASE INCREASED [None]
  - ASPARTATE AMINOTRANSFERASE INCREASED [None]
  - BLOOD ALKALINE PHOSPHATASE INCREASED [None]
  - BLOOD BILIRUBIN INCREASED [None]
  - DRUG INEFFECTIVE [None]
  - GAMMA-GLUTAMYLTRANSFERASE INCREASED [None]
  - HEPATIC FUNCTION ABNORMAL [None]
  - INFLAMMATION [None]
  - STEVENS-JOHNSON SYNDROME [None]
